FAERS Safety Report 5132969-4 (Version None)
Quarter: 2006Q4

REPORT INFORMATION
  Report Type: 
  Country: None (occurrence: None)
  Receive Date: 20061017
  Receipt Date: 20060801
  Transmission Date: 20070319
  Serious: Yes (Life-Threatening)
  Sender: FDA-Public Use
  Company Number: 2006-145338-NL

PATIENT
  Age: 74 Year
  Sex: Male

DRUGS (12)
  1. ROCURONIUM BROMIDE [Suspect]
     Indication: MUSCLE RELAXANT THERAPY
     Dosage: 40 MG ONCE/10 MG ONCE/10 MG ONCE; INTRAVENOUS NOS
     Route: 042
     Dates: start: 20050927, end: 20050927
  2. ROCURONIUM BROMIDE [Suspect]
     Indication: MUSCLE RELAXANT THERAPY
     Dosage: 40 MG ONCE/10 MG ONCE/10 MG ONCE; INTRAVENOUS NOS
     Route: 042
     Dates: start: 20050927, end: 20050927
  3. ROCURONIUM BROMIDE [Suspect]
     Indication: MUSCLE RELAXANT THERAPY
     Dosage: 40 MG ONCE/10 MG ONCE/10 MG ONCE; INTRAVENOUS NOS
     Route: 042
     Dates: start: 20050927, end: 20050927
  4. SUFENTANIL CITRATE [Concomitant]
  5. ISOFLURANE [Concomitant]
  6. OXYGEN [Concomitant]
  7. NITROUS OXIDE W/ OXYGEN [Concomitant]
  8. CEFAZOLIN SODIUM [Concomitant]
  9. LORAZEPAM [Concomitant]
  10. ACETAMINOPHEN [Concomitant]
  11. MIDAZOLAM HCL [Concomitant]
  12. BETAHISTINE HYDROCHLORIDE [Concomitant]

REACTIONS (1)
  - CIRCULATORY COLLAPSE [None]
